FAERS Safety Report 24457237 (Version 1)
Quarter: 2024Q4

REPORT INFORMATION
  Report Type: Spontaneous
  Country: US (occurrence: None)
  Receive Date: 20241018
  Receipt Date: 20241018
  Transmission Date: 20250115
  Serious: Yes (Death)
  Sender: ADAMAS PHARMA
  Company Number: US-ADAMAS Pharma-ADM202410-003728

PATIENT
  Age: 81 Year
  Sex: Female

DRUGS (11)
  1. GOCOVRI [Suspect]
     Active Substance: AMANTADINE
     Indication: Dyskinesia
     Route: 048
     Dates: start: 20230309, end: 20241002
  2. GOCOVRI [Suspect]
     Active Substance: AMANTADINE
     Indication: Parkinson^s disease
  3. NUPLAZID [Concomitant]
     Active Substance: PIMAVANSERIN TARTRATE
     Dosage: NOT PROVIDED
  4. AZILECT [Concomitant]
     Active Substance: RASAGILINE MESYLATE
     Dosage: NOT PROVIDED
  5. BYSTOLIC [Concomitant]
     Active Substance: NEBIVOLOL HYDROCHLORIDE
     Dosage: NOT PROVIDED
  6. PLAVIX [Concomitant]
     Active Substance: CLOPIDOGREL BISULFATE
     Dosage: NOT PROVIDED
  7. PRAVASTATIN [Concomitant]
     Active Substance: PRAVASTATIN
     Dosage: NOT PROVIDED
  8. RYTARY [Concomitant]
     Active Substance: CARBIDOPA\LEVODOPA
     Dosage: EACH DF CONTAINS 48.75-195 MG
  9. VITAMIN D [Concomitant]
     Active Substance: VITAMIN D NOS
     Dosage: NOT PROVIDED
  10. COMTAN [Concomitant]
     Active Substance: ENTACAPONE
     Dosage: NOT PROVIDED
  11. LASIX [Concomitant]
     Active Substance: FUROSEMIDE
     Dosage: NOT PROVIDED

REACTIONS (1)
  - Death [Fatal]

NARRATIVE: CASE EVENT DATE: 20241002
